FAERS Safety Report 9275903 (Version 1)
Quarter: 2012Q4

REPORT INFORMATION
  Report Type: Spontaneous
  Country: JP (occurrence: None)
  Receive Date: 20121109
  Receipt Date: 20121109
  Transmission Date: 20130627
  Serious: Yes (Hospitalization)
  Sender: FDA-Public Use
  Company Number: 2011S1000686

PATIENT
  Age: 89 Year
  Sex: Female

DRUGS (12)
  1. CUBICIN [Suspect]
     Indication: METHICILLIN-RESISTANT STAPHYLOCOCCAL AUREUS SEPSIS
     Route: 042
     Dates: start: 20110922, end: 20111002
  2. VANCOMYCIN [Concomitant]
  3. TARGOCID [Concomitant]
  4. HABEKACIN /01069401 [Concomitant]
  5. FOSMICIN /00552502/ [Concomitant]
  6. PENTCILLIN [Concomitant]
  7. MEROPENEX [Concomitant]
  8. SULPERAZON /00883901/ [Concomitant]
  9. TAZOBACTAM SODIUM [Concomitant]
  10. IMMUNOGLOBULIN HUMAN [Concomitant]
  11. AMIKACIN [Concomitant]
  12. CIPROXAN [Concomitant]

REACTIONS (3)
  - Drug eruption [None]
  - Pyrexia [None]
  - Rash [None]
